FAERS Safety Report 7481653-0 (Version None)
Quarter: 2011Q2

REPORT INFORMATION
  Report Type: 
  Country: None (occurrence: None)
  Receive Date: 20110516
  Receipt Date: 20110503
  Transmission Date: 20111010
  Serious: Yes (Other)
  Sender: FDA-Public Use
  Company Number: HR-ELI_LILLY_AND_COMPANY-HR201105001797

PATIENT
  Age: 82 Year
  Sex: Male
  Weight: 70 kg

DRUGS (4)
  1. ZYPREXA [Suspect]
     Indication: PERSONALITY DISORDER
     Dosage: 5 MG, UNKNOWN
     Route: 048
     Dates: start: 20110206, end: 20110225
  2. NORMABEL [Concomitant]
     Indication: PERSONALITY DISORDER
     Dosage: 5 MG, TID
     Route: 048
     Dates: start: 20110206, end: 20110225
  3. ANDROCUR [Concomitant]
     Indication: PROSTATE CANCER
     Dosage: 50 MG, TID
     Route: 048
     Dates: start: 20090101
  4. ZOLADEX                            /00732102/ [Concomitant]
     Indication: PROSTATE CANCER
     Dosage: UNK
     Route: 058
     Dates: start: 20090101

REACTIONS (5)
  - CACHEXIA [None]
  - OFF LABEL USE [None]
  - FACIAL PARESIS [None]
  - COMA [None]
  - DYSPHAGIA [None]
